FAERS Safety Report 8236659-0 (Version None)
Quarter: 2012Q1

REPORT INFORMATION
  Report Type: 
  Country: None (occurrence: None)
  Receive Date: 20120326
  Receipt Date: 20120326
  Transmission Date: 20120608
  Serious: No
  Sender: FDA-Public Use
  Company Number: None

PATIENT
  Age: 80 Year
  Sex: Female
  Weight: 56.6996 kg

DRUGS (1)
  1. BONIVA [Suspect]
     Indication: OSTEOPOROSIS
     Dosage: 1 TABLET ONCE PER MONTH
     Route: 048
     Dates: start: 20110301, end: 20111101

REACTIONS (3)
  - CHILLS [None]
  - PAIN [None]
  - INFLUENZA LIKE ILLNESS [None]
